FAERS Safety Report 17099728 (Version 1)
Quarter: 2019Q4

REPORT INFORMATION
  Report Type: Spontaneous
  Country: US (occurrence: US)
  Receive Date: 20191106
  Receipt Date: 20191106
  Transmission Date: 20200122
  Serious: Yes (Hospitalization)
  Sender: FDA-Public Use
  Company Number: None

PATIENT
  Sex: Female

DRUGS (17)
  1. BUMETANIDE. [Concomitant]
     Active Substance: BUMETANIDE
  2. SUCRALFATE. [Concomitant]
     Active Substance: SUCRALFATE
  3. OMEPRAZOLE. [Concomitant]
     Active Substance: OMEPRAZOLE
  4. METOPROLOL TARTRATE. [Concomitant]
     Active Substance: METOPROLOL TARTRATE
  5. OXYCODONE AND ACETAMINOPHEN [Concomitant]
     Active Substance: ACETAMINOPHEN\OXYCODONE HYDROCHLORIDE
  6. ALLOPURINOL. [Concomitant]
     Active Substance: ALLOPURINOL
  7. ASPIRIN. [Concomitant]
     Active Substance: ASPIRIN
  8. ONDANSETRON [Concomitant]
     Active Substance: ONDANSETRON
  9. LEVOTHYROXINE. [Concomitant]
     Active Substance: LEVOTHYROXINE
  10. MAG OXIDE [Concomitant]
     Active Substance: MAGNESIUM OXIDE
  11. SILDENAFIL 20MG [Suspect]
     Active Substance: SILDENAFIL
     Indication: PULMONARY HYPERTENSION
     Route: 048
  12. SPIRONALACTONE [Concomitant]
     Active Substance: SPIRONOLACTONE
  13. TORSEMIDE. [Concomitant]
     Active Substance: TORSEMIDE
  14. METOPROLOL SUCCINATE. [Concomitant]
     Active Substance: METOPROLOL SUCCINATE
  15. POT CL MICRO [Concomitant]
  16. METOLAZONE. [Concomitant]
     Active Substance: METOLAZONE
  17. ELIQUIS [Concomitant]
     Active Substance: APIXABAN

REACTIONS (1)
  - Cardiac operation [None]
